FAERS Safety Report 8512999 (Version 3)
Quarter: 2013Q4

REPORT INFORMATION
  Report Type: Report from Study
  Country: US (occurrence: US)
  Receive Date: 20120413
  Receipt Date: 20131125
  Transmission Date: 20140711
  Serious: Yes (Other)
  Sender: FDA-Public Use
  Company Number: US-ELI_LILLY_AND_COMPANY-US201204002738

PATIENT
  Age: 70 Year
  Sex: Female

DRUGS (3)
  1. TERIPARATIDE [Suspect]
     Indication: OSTEOPOROSIS
     Dosage: 20 UNK, UNK
     Route: 065
     Dates: start: 20120214
  2. TERIPARATIDE [Suspect]
     Dosage: 20 UG, QD
     Route: 065
  3. TERIPARATIDE [Suspect]
     Dosage: UNK, QD
     Route: 065
     Dates: start: 20120612

REACTIONS (8)
  - Parkinson^s disease [Unknown]
  - Neoplasm malignant [Unknown]
  - Anxiety [Unknown]
  - Fatigue [Unknown]
  - Asthenia [Unknown]
  - Feeling abnormal [Unknown]
  - Drug dose omission [Unknown]
  - Drug administration error [Unknown]
